FAERS Safety Report 5821261 (Version 2)
Quarter: 2025Q3

REPORT INFORMATION
  Report Type: Spontaneous
  Country: EU (occurrence: EU)
  Receive Date: 20050617
  Receipt Date: 20250814
  Transmission Date: 20251020
  Serious: Yes (Death, Hospitalization, Other)
  Sender: MERCK SHARP & DOHME LLC
  Company Number: None

PATIENT
  Age: 9 Year
  Sex: Male

DRUGS (2)
  1. CASPOFUNGIN ACETATE [Suspect]
     Active Substance: CASPOFUNGIN ACETATE
     Indication: Antifungal prophylaxis
     Route: 042
  2. PENICILLIN V [Concomitant]
     Active Substance: PENICILLIN V
     Indication: Spleen disorder
     Route: 048

REACTIONS (6)
  - Cytomegalovirus infection [Fatal]
  - Nasal abscess [Recovering/Resolving]
  - Leukocytosis [Recovering/Resolving]
  - C-reactive protein increased [Recovering/Resolving]
  - Drug ineffective [Not Recovered/Not Resolved]
  - Interstitial lung disease [Fatal]
